FAERS Safety Report 8596209 (Version 2)
Quarter: 2013Q2

REPORT INFORMATION
  Report Type: Spontaneous
  Country: US (occurrence: US)
  Receive Date: 20120605
  Receipt Date: 20130617
  Transmission Date: 20140414
  Serious: Yes (Disabling, Other)
  Sender: FDA-Public Use
  Company Number: US-ASTRAZENECA-2012SE34817

PATIENT
  Age: 785 Month
  Sex: Female
  Weight: 99.8 kg

DRUGS (7)
  1. NEXIUM [Suspect]
     Indication: DYSPEPSIA
     Route: 048
     Dates: start: 1995, end: 2003
  2. OMEPRAZOLE [Suspect]
     Dosage: TWICE DAILY
     Route: 048
  3. RANITIDINE [Concomitant]
     Dosage: AS NEEDED 1 DAILY
  4. MILK OF MAGNESIA [Concomitant]
     Dosage: AS NEEDED 1 DAILY
  5. CALCIUM [Concomitant]
     Indication: BONE DISORDER
  6. OMEGA 3 [Concomitant]
  7. MELOXIEM [Concomitant]

REACTIONS (9)
  - Hip fracture [Unknown]
  - Cervical vertebral fracture [Unknown]
  - Ill-defined disorder [Unknown]
  - Osteoporosis [Unknown]
  - Multiple fractures [Unknown]
  - Hand fracture [Unknown]
  - Foot fracture [Unknown]
  - Lower limb fracture [Unknown]
  - Arthritis [Unknown]
